FAERS Safety Report 14356597 (Version 1)
Quarter: 2020Q3

REPORT INFORMATION
  Report Type: Report from Study
  Country: IN (occurrence: IN)
  Receive Date: 20180105
  Receipt Date: 20180105
  Transmission Date: 20201104
  Serious: Yes (Death, Life-Threatening, Other)
  Sender: FDA-Public Use
  Company Number: IN-ASTRAZENECA-2017SE62611

PATIENT
  Age: 20400 Day
  Sex: Male

DRUGS (43)
  1. EMESET [Concomitant]
     Active Substance: ONDANSETRON HYDROCHLORIDE
     Indication: NAUSEA
     Dosage: 4.0MG AS REQUIRED
     Route: 048
     Dates: start: 20170415
  2. EMESET [Concomitant]
     Active Substance: ONDANSETRON HYDROCHLORIDE
     Indication: VOMITING
     Dosage: 4.0MG AS REQUIRED
     Route: 042
     Dates: start: 20170425, end: 20170426
  3. EMESET [Concomitant]
     Active Substance: ONDANSETRON HYDROCHLORIDE
     Indication: NAUSEA
     Dosage: 8.0MG AS REQUIRED
     Route: 042
     Dates: start: 20170519, end: 20170524
  4. ETIZOLAM [Concomitant]
     Active Substance: ETIZOLAM
     Indication: INSOMNIA
     Route: 048
     Dates: start: 20170525, end: 20170530
  5. DOLO [Concomitant]
     Indication: PAIN
     Route: 048
     Dates: start: 20170527, end: 20170530
  6. TRAMADOL. [Concomitant]
     Active Substance: TRAMADOL
     Indication: PAIN
     Route: 048
     Dates: start: 20170525, end: 20170530
  7. TRAMADOL. [Concomitant]
     Active Substance: TRAMADOL
     Indication: PAIN
     Route: 042
     Dates: start: 20170526, end: 20170527
  8. TRYPTOMER [Concomitant]
     Active Substance: AMITRIPTYLINE
     Indication: DEPRESSION
     Route: 048
     Dates: start: 20170511, end: 20170519
  9. MEDI4736 [Suspect]
     Active Substance: DURVALUMAB
     Indication: NON-SMALL CELL LUNG CANCER
     Route: 042
     Dates: start: 20170511, end: 20170511
  10. EMESET [Concomitant]
     Active Substance: ONDANSETRON HYDROCHLORIDE
     Indication: VOMITING
     Dosage: 8.0MG AS REQUIRED
     Route: 042
     Dates: start: 20170525, end: 20170527
  11. PREGABALIN. [Concomitant]
     Active Substance: PREGABALIN
     Indication: PAIN
     Route: 048
     Dates: start: 20170511
  12. NEKSIUM [Concomitant]
     Indication: HYPERCHLORHYDRIA
     Route: 048
     Dates: start: 20170327
  13. WYSOLONE [Concomitant]
     Active Substance: PREDNISOLONE
     Indication: GASTROENTERITIS
     Route: 048
     Dates: start: 20170527, end: 20170602
  14. TRAMADOL. [Concomitant]
     Active Substance: TRAMADOL
     Indication: PAIN
     Route: 042
     Dates: start: 20170519, end: 20170524
  15. LOOZ [Concomitant]
     Indication: CONSTIPATION
     Route: 048
     Dates: start: 20170527, end: 20170529
  16. EMESET [Concomitant]
     Active Substance: ONDANSETRON HYDROCHLORIDE
     Indication: VOMITING
     Route: 042
     Dates: start: 20170415, end: 20170415
  17. TRAMADOL. [Concomitant]
     Active Substance: TRAMADOL
     Indication: PAIN
     Route: 042
     Dates: start: 20170414, end: 20170415
  18. MORPHINE [Concomitant]
     Active Substance: MORPHINE
     Indication: PAIN
     Route: 048
     Dates: start: 20170530
  19. EMESET [Concomitant]
     Active Substance: ONDANSETRON HYDROCHLORIDE
     Indication: NAUSEA
     Route: 042
     Dates: start: 20170415, end: 20170415
  20. FENTANYL. [Concomitant]
     Active Substance: FENTANYL
     Indication: PAIN
     Dosage: 50 UG/HR, EVERY TWO WEEKS
     Route: 061
     Dates: start: 20170511, end: 20170514
  21. DUOLIN RESPULES [Concomitant]
     Active Substance: LEVALBUTEROL HYDROCHLORIDE
     Indication: DYSPNOEA
     Route: 055
     Dates: start: 20170525, end: 20170530
  22. TRAMADOL. [Concomitant]
     Active Substance: TRAMADOL
     Indication: PAIN
     Route: 042
     Dates: start: 20170425, end: 20170426
  23. ORAL REHYDRATION [Concomitant]
     Indication: SUPPLEMENTATION THERAPY
     Dosage: 1 SACHET, QID
     Route: 048
     Dates: start: 20170525, end: 20170528
  24. MEDI4736 [Suspect]
     Active Substance: DURVALUMAB
     Indication: NON-SMALL CELL LUNG CANCER
     Route: 042
     Dates: start: 20170415, end: 20170415
  25. EMESET [Concomitant]
     Active Substance: ONDANSETRON HYDROCHLORIDE
     Indication: VOMITING
     Dosage: 8.0MG AS REQUIRED
     Route: 042
     Dates: start: 20170519, end: 20170524
  26. FENTANYL. [Concomitant]
     Active Substance: FENTANYL
     Indication: PAIN
     Route: 061
     Dates: start: 20170523
  27. STEMETIL MD [Concomitant]
     Indication: VOMITING
     Route: 048
     Dates: start: 20170525, end: 20170530
  28. WYSOLONE [Concomitant]
     Active Substance: PREDNISOLONE
     Indication: GASTROENTERITIS
     Route: 048
     Dates: start: 20170523, end: 20170524
  29. PREGABALIN. [Concomitant]
     Active Substance: PREGABALIN
     Indication: PAIN
     Route: 048
     Dates: start: 20170426, end: 20170426
  30. PENTAZOCINE [Concomitant]
     Active Substance: PENTAZOCINE
     Indication: PAIN
     Route: 042
     Dates: start: 20170528, end: 20170529
  31. TRYPTOMER [Concomitant]
     Active Substance: AMITRIPTYLINE
     Indication: DEPRESSION
     Route: 048
     Dates: start: 20170529
  32. TREMELIMUMAB. [Suspect]
     Active Substance: TREMELIMUMAB
     Indication: NON-SMALL CELL LUNG CANCER
     Route: 042
     Dates: start: 20170415, end: 20170415
  33. EMESET [Concomitant]
     Active Substance: ONDANSETRON HYDROCHLORIDE
     Indication: VOMITING
     Dosage: 4.0MG AS REQUIRED
     Route: 048
     Dates: start: 20170415
  34. FENTANYL. [Concomitant]
     Active Substance: FENTANYL
     Indication: PAIN
     Route: 061
     Dates: start: 20170414
  35. TRAMADOL. [Concomitant]
     Active Substance: TRAMADOL
     Indication: PAIN
     Route: 042
     Dates: start: 20170426, end: 20170426
  36. PENTAZOCINE [Concomitant]
     Active Substance: PENTAZOCINE
     Indication: PAIN
     Route: 042
     Dates: start: 20170526, end: 20170527
  37. PENTAZOCINE [Concomitant]
     Active Substance: PENTAZOCINE
     Indication: PAIN
     Route: 048
     Dates: start: 20170527, end: 20170528
  38. MORPHINE [Concomitant]
     Active Substance: MORPHINE
     Indication: PAIN
     Route: 048
     Dates: start: 20170511, end: 20170519
  39. TREMELIMUMAB. [Suspect]
     Active Substance: TREMELIMUMAB
     Indication: NON-SMALL CELL LUNG CANCER
     Route: 042
     Dates: start: 20170511, end: 20170511
  40. EMESET [Concomitant]
     Active Substance: ONDANSETRON HYDROCHLORIDE
     Indication: NAUSEA
     Dosage: 4.0MG AS REQUIRED
     Route: 042
     Dates: start: 20170425, end: 20170426
  41. EMESET [Concomitant]
     Active Substance: ONDANSETRON HYDROCHLORIDE
     Indication: NAUSEA
     Dosage: 8.0MG AS REQUIRED
     Route: 042
     Dates: start: 20170525, end: 20170527
  42. PREGABALIN. [Concomitant]
     Active Substance: PREGABALIN
     Indication: PAIN
     Route: 048
     Dates: start: 20170527
  43. MUCCAINE [Concomitant]
     Indication: GASTROENTERITIS
     Route: 048
     Dates: start: 20170527

REACTIONS (1)
  - Diarrhoea [Fatal]

NARRATIVE: CASE EVENT DATE: 20170610
